FAERS Safety Report 9011404 (Version 2)
Quarter: 2013Q1

REPORT INFORMATION
  Report Type: Spontaneous
  Country: US (occurrence: US)
  Receive Date: 20130111
  Receipt Date: 20130118
  Transmission Date: 20140127
  Serious: Yes (Other)
  Sender: FDA-Public Use
  Company Number: US-TEVA-379490USA

PATIENT
  Age: 70 Year
  Sex: Female

DRUGS (1)
  1. BENAZEPRIL [Suspect]

REACTIONS (4)
  - Breast cancer [Unknown]
  - Swelling [Unknown]
  - Blood calcium increased [Unknown]
  - Weight increased [Unknown]
